FAERS Safety Report 8057272-4 (Version None)
Quarter: 2012Q1

REPORT INFORMATION
  Report Type: 
  Country: None (occurrence: None)
  Receive Date: 20120119
  Receipt Date: 20120114
  Transmission Date: 20120608
  Serious: Yes (Other)
  Sender: FDA-Public Use
  Company Number: PHHY2008CA29015

PATIENT
  Sex: Female

DRUGS (7)
  1. MORPHINE SULFATE [Concomitant]
     Dosage: 10 MG, BID
  2. ZOLEDRONOC ACID [Suspect]
     Indication: OSTEOPOROSIS POSTMENOPAUSAL
     Dosage: 5 MG, UNK
     Route: 042
  3. ZOLEDRONOC ACID [Suspect]
     Dosage: 5 MG, UNK
     Route: 042
     Dates: start: 20120113
  4. VITAMIN D [Concomitant]
     Dosage: 1000 U
  5. SIMVASTATIN [Concomitant]
     Dosage: 5 MG, BID
  6. ZYTRAM [Concomitant]
     Dosage: 300 MG
  7. PREDNISONE TAB [Concomitant]
     Dosage: 10 MG, QD

REACTIONS (9)
  - INJECTION SITE EXTRAVASATION [None]
  - MUSCULOSKELETAL PAIN [None]
  - APPLICATION SITE HAEMATOMA [None]
  - PAIN IN EXTREMITY [None]
  - INSOMNIA [None]
  - HEADACHE [None]
  - RADICULAR PAIN [None]
  - INJECTION SITE MASS [None]
  - LIP DRY [None]
